FAERS Safety Report 9304801 (Version 1)
Quarter: 2013Q2

REPORT INFORMATION
  Report Type: Spontaneous
  Country: US (occurrence: None)
  Receive Date: 20130521
  Receipt Date: 20130521
  Transmission Date: 20140414
  Serious: Yes (Hospitalization)
  Sender: FDA-Public Use
  Company Number: None

PATIENT
  Age: 49 Year
  Sex: Male
  Weight: 155.5 kg

DRUGS (2)
  1. AMLODIPINE [Suspect]
     Route: 048
     Dates: start: 20110725, end: 20130317
  2. METOPROLOL [Suspect]
     Route: 048
     Dates: start: 20121227, end: 20130317

REACTIONS (4)
  - Hypotension [None]
  - Chest discomfort [None]
  - Dyspnoea [None]
  - Dizziness [None]
